FAERS Safety Report 6895755-0 (Version None)
Quarter: 2010Q3

REPORT INFORMATION
  Report Type: 
  Country: None (occurrence: None)
  Receive Date: 20100730
  Receipt Date: 20100730
  Transmission Date: 20110219
  Serious: No
  Sender: FDA-Public Use
  Company Number: None

PATIENT
  Sex: Male
  Weight: 79.3795 kg

DRUGS (1)
  1. SIMVASTATIN [Suspect]
     Indication: BLOOD CHOLESTEROL
     Dosage: 10MG DAILY
     Dates: start: 20091005, end: 20100729

REACTIONS (2)
  - RENAL IMPAIRMENT [None]
  - URINE OUTPUT INCREASED [None]
